FAERS Safety Report 9789016 (Version 1)
Quarter: 2013Q4

REPORT INFORMATION
  Report Type: Spontaneous
  Country: US (occurrence: US)
  Receive Date: 20131230
  Receipt Date: 20131230
  Transmission Date: 20140711
  Serious: No
  Sender: FDA-Public Use
  Company Number: US-ASTRAZENECA-2013SE79135

PATIENT
  Age: 60 Year
  Sex: Male
  Weight: 113.4 kg

DRUGS (9)
  1. NEXIUM [Suspect]
     Indication: HIATUS HERNIA
     Dosage: DAILY
     Route: 048
  2. BRILINTA [Suspect]
     Indication: STENT PLACEMENT
     Route: 048
     Dates: start: 20130723
  3. BRILINTA [Suspect]
     Indication: STENT PLACEMENT
     Route: 048
  4. INSULIN [Concomitant]
     Indication: DIABETES MELLITUS
     Dosage: 70/30 BID
     Route: 058
  5. MORPHINE [Concomitant]
     Indication: PAIN
     Route: 048
  6. DILAUDID [Concomitant]
     Indication: PAIN
     Route: 048
  7. PHENERGAN [Concomitant]
     Indication: NAUSEA
     Route: 048
  8. CLONIDINE [Concomitant]
     Indication: ARTHRITIS
     Route: 048
  9. ASPIRIN [Concomitant]
     Indication: STENT PLACEMENT
     Route: 048

REACTIONS (11)
  - Contusion [Recovered/Resolved]
  - Gouty arthritis [Recovered/Resolved]
  - Fatigue [Unknown]
  - Skin haemorrhage [Unknown]
  - Gingival blister [Recovered/Resolved]
  - Oral mucosal blistering [Recovered/Resolved]
  - Skin atrophy [Unknown]
  - Skin fragility [Unknown]
  - Abdominal pain [Unknown]
  - Nausea [Recovered/Resolved]
  - Drug dose omission [Unknown]
